FAERS Safety Report 7069509-9 (Version None)
Quarter: 2010Q4

REPORT INFORMATION
  Report Type: 
  Country: None (occurrence: None)
  Receive Date: 20101028
  Receipt Date: 20100322
  Transmission Date: 20110411
  Serious: No
  Sender: FDA-Public Use
  Company Number: US-WYE-H11123809

PATIENT
  Sex: Female

DRUGS (5)
  1. EFFEXOR [Suspect]
     Dosage: UNSPECIFIED
  2. DARVOCET-N 100 [Concomitant]
  3. HYDRODIURIL [Concomitant]
  4. LYRICA [Suspect]
     Indication: FIBROMYALGIA
     Route: 048
     Dates: start: 20090801, end: 20090815
  5. LYRICA [Suspect]
     Indication: PAIN

REACTIONS (4)
  - ANXIETY [None]
  - DRUG WITHDRAWAL SYNDROME [None]
  - VISION BLURRED [None]
  - WEIGHT INCREASED [None]
